FAERS Safety Report 8453070-8 (Version None)
Quarter: 2012Q2

REPORT INFORMATION
  Report Type: 
  Country: None (occurrence: None)
  Receive Date: 20120620
  Receipt Date: 20120507
  Transmission Date: 20120825
  Serious: No
  Sender: FDA-Public Use
  Company Number: US-VERTEX PHARMACEUTICALS INC.-AE-2012-006559

PATIENT
  Sex: Male
  Weight: 72.64 kg

DRUGS (11)
  1. INCIVEK [Suspect]
     Indication: HEPATITIS C
     Route: 048
     Dates: start: 20120425
  2. TRILEPTAL [Concomitant]
     Indication: CONVULSION
     Route: 048
  3. ATRIPLA [Concomitant]
     Indication: HIV INFECTION
     Route: 048
  4. BYSTOLIC [Concomitant]
     Indication: HYPERTENSION
     Route: 048
  5. PEGASYS [Concomitant]
     Indication: HEPATITIS C
     Route: 058
  6. TRAZODONE HCL [Concomitant]
     Indication: DEPRESSION
     Route: 048
  7. KEPPRA [Concomitant]
     Indication: CONVULSION
     Route: 048
  8. UROXATRAL [Concomitant]
     Indication: PROSTATOMEGALY
     Route: 048
  9. HYDROCODONE BITARTRATE AND ACETAMINOPHEN [Concomitant]
     Indication: BACK PAIN
     Route: 048
  10. COPEGUS [Concomitant]
     Indication: HEPATITIS C
     Route: 048
     Dates: start: 20120425
  11. SEROQUEL [Concomitant]
     Indication: DEPRESSION
     Route: 048

REACTIONS (5)
  - VOMITING [None]
  - INCORRECT DOSE ADMINISTERED [None]
  - INFLUENZA LIKE ILLNESS [None]
  - DRUG DOSE OMISSION [None]
  - INAPPROPRIATE SCHEDULE OF DRUG ADMINISTRATION [None]
